FAERS Safety Report 15904055 (Version 1)
Quarter: 2019Q1

REPORT INFORMATION
  Report Type: Spontaneous
  Country: US (occurrence: US)
  Receive Date: 20190204
  Receipt Date: 20190204
  Transmission Date: 20190417
  Serious: Yes (Other)
  Sender: FDA-Public Use
  Company Number: US-ALEXION-A201901530

PATIENT
  Sex: Female

DRUGS (2)
  1. SOLIRIS [Suspect]
     Active Substance: ECULIZUMAB
     Dosage: UNK, QW
     Route: 042
  2. SOLIRIS [Suspect]
     Active Substance: ECULIZUMAB
     Indication: PRODUCT USED FOR UNKNOWN INDICATION
     Dosage: UNK, Q2W
     Route: 065

REACTIONS (5)
  - Delayed graft function [Unknown]
  - Thrombotic microangiopathy [Not Recovered/Not Resolved]
  - Haemolytic anaemia [Unknown]
  - Inappropriate schedule of product administration [Not Recovered/Not Resolved]
  - Total complement activity decreased [Unknown]
